FAERS Safety Report 24111504 (Version 1)
Quarter: 2024Q3

REPORT INFORMATION
  Report Type: Spontaneous
  Country: JP (occurrence: JP)
  Receive Date: 20240718
  Receipt Date: 20240718
  Transmission Date: 20241017
  Serious: Yes (Other)
  Sender: EISAI
  Company Number: JP-Eisai-202404499_HAL-STS_P_1

PATIENT
  Age: 31 Year
  Sex: Female

DRUGS (1)
  1. HALAVEN [Suspect]
     Active Substance: ERIBULIN MESYLATE
     Indication: Uterine leiomyosarcoma
     Route: 041

REACTIONS (9)
  - Interstitial lung disease [Unknown]
  - Myelosuppression [Unknown]
  - Neuropathy peripheral [Unknown]
  - Hepatic function abnormal [Unknown]
  - Alopecia [Unknown]
  - Nausea [Unknown]
  - Stomatitis [Unknown]
  - Taste disorder [Unknown]
  - Fatigue [Unknown]
